FAERS Safety Report 13530291 (Version 1)
Quarter: 2017Q2

REPORT INFORMATION
  Report Type: Spontaneous
  Country: US (occurrence: US)
  Receive Date: 20170509
  Receipt Date: 20170509
  Transmission Date: 20170830
  Serious: No
  Sender: FDA-Public Use
  Company Number: US-UCBSA-2016026872

PATIENT
  Age: 84 Year
  Sex: Female
  Weight: 145 kg

DRUGS (3)
  1. NEUPRO [Suspect]
     Active Substance: ROTIGOTINE
     Indication: RESTLESS LEGS SYNDROME
     Dosage: 3 MG, ONCE DAILY (QD)
     Dates: start: 201602, end: 201607
  2. ROPINIROLE. [Concomitant]
     Active Substance: ROPINIROLE
     Indication: RESTLESS LEGS SYNDROME
     Dosage: 1 MG, 3X/DAY (TID)
     Dates: start: 201607
  3. NEUPRO [Suspect]
     Active Substance: ROTIGOTINE
     Dosage: 4 MG, ONCE DAILY (QD)
     Dates: start: 201604, end: 201607

REACTIONS (5)
  - Application site erythema [Recovered/Resolved]
  - Application site discolouration [Recovered/Resolved]
  - Application site pruritus [Recovered/Resolved]
  - Application site irritation [Recovered/Resolved]
  - Overdose [Unknown]

NARRATIVE: CASE EVENT DATE: 201602
